FAERS Safety Report 8697974 (Version 4)
Quarter: 2012Q4

REPORT INFORMATION
  Report Type: 
  Country: US (occurrence: US)
  Receive Date: 20120801
  Receipt Date: 20120829
  Transmission Date: 20130627
  Serious: Yes (Hospitalization, Other)
  Sender: FDA-Public Use
  Company Number: PHEH2012US014774

PATIENT
  Age: 51 None
  Sex: Male

DRUGS (3)
  1. LOPRESSOR [Suspect]
     Indication: HYPERTENSION
     Dosage: UNK UKN, UNK
  2. METOPROLOL [Suspect]
     Dosage: UNK UKN, UNK
  3. NORVASC [Suspect]
     Dosage: UNK UKN, UNK

REACTIONS (4)
  - Rectal haemorrhage [Unknown]
  - Headache [Unknown]
  - Drug ineffective [Unknown]
  - Product substitution issue [None]
